FAERS Safety Report 4482239-2 (Version None)
Quarter: 2004Q4

REPORT INFORMATION
  Report Type: 
  Country: None (occurrence: None)
  Receive Date: 20041020
  Receipt Date: 20041004
  Transmission Date: 20050328
  Serious: Yes (Other)
  Sender: FDA-Public Use
  Company Number: USA041079964

PATIENT
  Age: 55 Year
  Sex: Male
  Weight: 91 kg

DRUGS (1)
  1. HUMULIN 70/30 [Suspect]
     Indication: DIABETES MELLITUS
     Dates: start: 19940101

REACTIONS (4)
  - ABASIA [None]
  - BEDRIDDEN [None]
  - BLOOD GLUCOSE INCREASED [None]
  - MULTIPLE MYELOMA [None]
